FAERS Safety Report 5352288-0 (Version None)
Quarter: 2007Q2

REPORT INFORMATION
  Report Type: 
  Country: None (occurrence: None)
  Receive Date: 20070607
  Receipt Date: 20070607
  Transmission Date: 20071010
  Serious: Yes (Hospitalization)
  Sender: FDA-Public Use
  Company Number: None

PATIENT
  Age: 67 Year
  Sex: Female
  Weight: 70.3 kg

DRUGS (2)
  1. GEMCITABINE [Suspect]
     Indication: PANCREATIC CARCINOMA
     Dosage: D 1,8, 5 Q28 DAYS IV DRIP
     Route: 041
     Dates: start: 20070531, end: 20070531
  2. ERLOTINIB 150MG PO [Suspect]
     Indication: PANCREATIC CARCINOMA
     Dosage: 150MG PO QD X 28 D PO
     Route: 048
     Dates: start: 20070531, end: 20070531

REACTIONS (3)
  - DEEP VEIN THROMBOSIS [None]
  - NAUSEA [None]
  - VOMITING [None]
